FAERS Safety Report 15870926 (Version 1)
Quarter: 2019Q1

REPORT INFORMATION
  Report Type: Other
  Country: US (occurrence: US)
  Receive Date: 20190126
  Receipt Date: 20190126
  Transmission Date: 20190417
  Serious: No
  Sender: FDA-Public Use
  Company Number: US-ACORDA-ACO_152130_2018

PATIENT
  Sex: Female

DRUGS (1)
  1. AMPYRA [Suspect]
     Active Substance: DALFAMPRIDINE
     Indication: PRODUCT USED FOR UNKNOWN INDICATION
     Dosage: 10 MG, Q 12 HRS
     Route: 048
     Dates: start: 20180710

REACTIONS (10)
  - Hypoaesthesia [Unknown]
  - Headache [Unknown]
  - Asthenopia [Unknown]
  - Fall [Unknown]
  - Muscular weakness [Unknown]
  - Paraesthesia [Unknown]
  - Gait disturbance [Unknown]
  - Dry eye [Unknown]
  - Dizziness [Unknown]
  - Disturbance in attention [Unknown]
